FAERS Safety Report 5840118-X (Version None)
Quarter: 2008Q3

REPORT INFORMATION
  Report Type: 
  Country: None (occurrence: None)
  Receive Date: 20080811
  Receipt Date: 20080807
  Transmission Date: 20090109
  Serious: Yes (Hospitalization)
  Sender: FDA-Public Use
  Company Number: CH-BRISTOL-MYERS SQUIBB COMPANY-14292460

PATIENT
  Age: 33 Year
  Sex: Female

DRUGS (2)
  1. TRITTICO [Suspect]
     Indication: INSOMNIA
     Dosage: FORMULATION = 50MG TABS
     Route: 048
     Dates: start: 20080701, end: 20080704
  2. NORELGESTROMIN + ETHINYLESTRADIOL [Concomitant]
     Dates: start: 20080301

REACTIONS (1)
  - PANCREATITIS [None]
